FAERS Safety Report 5191128-X (Version None)
Quarter: 2006Q4

REPORT INFORMATION
  Report Type: 
  Country: None (occurrence: None)
  Receive Date: 20061226
  Receipt Date: 20061212
  Transmission Date: 20070319
  Serious: Yes (Hospitalization)
  Sender: FDA-Public Use
  Company Number: PHNR2006AU01684

PATIENT
  Age: 85 Year
  Sex: Female
  Weight: 50 kg

DRUGS (6)
  1. ALLOPURINOL [Suspect]
     Indication: GOUT
     Dosage: 100 MG, UNK
     Dates: start: 20051208, end: 20051212
  2. PANTOPRAZOLE SODIUM [Concomitant]
  3. THIAMINE [Concomitant]
  4. MAGMIN [Concomitant]
  5. COLCHICINE [Concomitant]
  6. SLOW-K [Suspect]
     Dosage: 6 UNSPECIFIED DOSE DAILY
     Route: 048
     Dates: start: 20051207, end: 20051212

REACTIONS (3)
  - BLOOD CREATININE INCREASED [None]
  - HYPERKALAEMIA [None]
  - RENAL FAILURE ACUTE [None]
